FAERS Safety Report 8125821-3 (Version None)
Quarter: 2012Q1

REPORT INFORMATION
  Report Type: 
  Country: None (occurrence: None)
  Receive Date: 20120209
  Receipt Date: 20120127
  Transmission Date: 20120608
  Serious: Yes (Hospitalization)
  Sender: FDA-Public Use
  Company Number: US-MYLANLABS-2012S1002301

PATIENT
  Age: 29 Year
  Sex: Female

DRUGS (5)
  1. HYDROMORPHONE HCL [Suspect]
     Indication: PAIN
     Dosage: DAILY USE OF UP TO 40MG
     Route: 065
  2. HYDROMORPHONE HCL [Suspect]
     Dosage: PATIENT-CONTROLLED ANALGESIA
     Route: 065
  3. MORPHINE [Suspect]
     Indication: PAIN
     Route: 065
  4. HYDROMORPHONE HCL [Suspect]
     Indication: BREAKTHROUGH PAIN
     Dosage: DAILY USE OF UP TO 40MG
     Route: 065
  5. HYDROMORPHONE HCL [Suspect]
     Dosage: PATIENT-CONTROLLED ANALGESIA
     Route: 065

REACTIONS (2)
  - HYPERAESTHESIA [None]
  - DRUG TOLERANCE [None]
